FAERS Safety Report 6665900-0 (Version None)
Quarter: 2010Q2

REPORT INFORMATION
  Report Type: 
  Country: None (occurrence: None)
  Receive Date: 20100402
  Receipt Date: 20100324
  Transmission Date: 20101027
  Serious: Yes (Hospitalization)
  Sender: FDA-Public Use
  Company Number: JP-ROCHE-693430

PATIENT
  Sex: Female
  Weight: 49 kg

DRUGS (6)
  1. XELODA [Suspect]
     Indication: RECTAL CANCER
     Route: 048
     Dates: start: 20091210, end: 20100226
  2. FAMOTIDINE [Concomitant]
     Dosage: DRUG: BLOSTAR M (FAMOTIDINE)
     Route: 048
     Dates: start: 20091203
  3. PRIMPERAN INJ [Concomitant]
     Route: 048
     Dates: start: 20091210
  4. NAUZELIN [Concomitant]
     Route: 048
     Dates: start: 20091210
  5. LEUCON [Concomitant]
     Route: 048
     Dates: start: 20091217
  6. DEPAKENE [Concomitant]
     Route: 048
     Dates: start: 20091125

REACTIONS (5)
  - ALANINE AMINOTRANSFERASE INCREASED [None]
  - ASPARTATE AMINOTRANSFERASE INCREASED [None]
  - BLOOD BILIRUBIN INCREASED [None]
  - GASTRITIS [None]
  - HEPATIC FUNCTION ABNORMAL [None]
